FAERS Safety Report 8102641-7 (Version None)
Quarter: 2011Q4

REPORT INFORMATION
  Report Type: 
  Country: None (occurrence: None)
  Receive Date: 20111222
  Receipt Date: 20110907
  Transmission Date: 20120403
  Serious: Yes (Death, Hospitalization)
  Sender: FDA-Public Use
  Company Number: UTC-010034

PATIENT
  Age: 62 Year
  Sex: Male
  Weight: 76.36 kg

DRUGS (2)
  1. TYVASO [Suspect]
     Indication: PULMONARY ARTERIAL HYPERTENSION
     Dosage: 18-54 MICROGRAMS (4 IN 1 D), INHALATION
     Route: 055
     Dates: start: 20100819
  2. REVATIO [Concomitant]

REACTIONS (2)
  - HAEMATOMA [None]
  - HAEMORRHAGE INTRACRANIAL [None]
